FAERS Safety Report 4846960-6 (Version None)
Quarter: 2005Q4

REPORT INFORMATION
  Report Type: 
  Country: None (occurrence: None)
  Receive Date: 20051207
  Receipt Date: 20051201
  Transmission Date: 20060501
  Serious: Yes (Other)
  Sender: FDA-Public Use
  Company Number: US-BRISTOL-MYERS SQUIBB COMPANY-13201918

PATIENT
  Sex: Female

DRUGS (11)
  1. AVALIDE [Suspect]
     Route: 048
  2. COUMADIN [Suspect]
     Route: 048
  3. ASMANEX [Suspect]
     Indication: ASTHMA
     Route: 055
     Dates: start: 20050101, end: 20051117
  4. ASMANEX [Suspect]
     Indication: EMPHYSEMA
     Route: 055
     Dates: start: 20050101, end: 20051117
  5. CARDIZEM [Suspect]
     Route: 048
  6. FISH OIL [Suspect]
  7. MAXAIR [Suspect]
     Route: 055
  8. MUCINEX [Suspect]
     Route: 048
  9. XOPENEX [Suspect]
     Route: 055
  10. ZANTAC [Suspect]
     Route: 048
  11. MULTI-VITAMINS [Concomitant]
     Indication: VITAMIN SUPPLEMENTATION
     Route: 048

REACTIONS (4)
  - ASTHMA [None]
  - ATRIAL FIBRILLATION [None]
  - FEELING ABNORMAL [None]
  - NERVOUSNESS [None]
